FAERS Safety Report 12200446 (Version 1)
Quarter: 2016Q1

REPORT INFORMATION
  Report Type: Report from Study
  Country: CA (occurrence: CA)
  Receive Date: 20160322
  Receipt Date: 20160322
  Transmission Date: 20160526
  Serious: Yes (Hospitalization, Other)
  Sender: FDA-Public Use
  Company Number: CA-BIOGEN-2016BI00206226

PATIENT
  Age: 49 Year
  Sex: Female

DRUGS (1)
  1. TYSABRI [Suspect]
     Active Substance: NATALIZUMAB
     Indication: MULTIPLE SCLEROSIS
     Route: 042
     Dates: start: 20120416

REACTIONS (7)
  - Diarrhoea [Unknown]
  - Loss of consciousness [Recovered/Resolved]
  - Toxic shock syndrome [Recovered/Resolved]
  - Decreased appetite [Unknown]
  - Dehydration [Unknown]
  - Vaginal discharge [Recovered/Resolved]
  - Weight decreased [Unknown]

NARRATIVE: CASE EVENT DATE: 20160207
